FAERS Safety Report 17318067 (Version 2)
Quarter: 2020Q1

REPORT INFORMATION
  Report Type: Spontaneous
  Country: US (occurrence: US)
  Receive Date: 20200124
  Receipt Date: 20200305
  Transmission Date: 20200409
  Serious: Yes (Other)
  Sender: FDA-Public Use
  Company Number: US-ABBVIE-20K-163-3246601-00

PATIENT
  Age: 90 Year
  Sex: Male
  Weight: 79 kg

DRUGS (1)
  1. IMBRUVICA [Suspect]
     Active Substance: IBRUTINIB
     Indication: PRODUCT USED FOR UNKNOWN INDICATION
     Route: 048

REACTIONS (2)
  - Diarrhoea [Unknown]
  - Cerebrovascular accident [Recovered/Resolved]

NARRATIVE: CASE EVENT DATE: 20200108
